FAERS Safety Report 6159683-0 (Version None)
Quarter: 2009Q2

REPORT INFORMATION
  Report Type: 
  Country: None (occurrence: None)
  Receive Date: 20090420
  Receipt Date: 20090318
  Transmission Date: 20091009
  Serious: No
  Sender: FDA-Public Use
  Company Number: US-BAYER-200911393NA

PATIENT
  Age: 34 Year
  Sex: Female
  Weight: 59 kg

DRUGS (5)
  1. MIRENA [Suspect]
     Indication: CONTRACEPTION
     Dosage: CONTINUOUS
     Route: 015
     Dates: start: 20070514, end: 20090112
  2. AMBIEN CR [Concomitant]
     Indication: SLEEP DISORDER
     Dosage: TOTAL DAILY DOSE: 12.5 MG
     Route: 048
  3. VERSAMIST [Concomitant]
     Indication: MULTIPLE ALLERGIES
  4. ERYTHROMYCIN [Concomitant]
     Indication: ACNE
     Dosage: TOTAL DAILY DOSE: 500 MG
     Route: 048
  5. MULTI-VITAMIN [Concomitant]

REACTIONS (15)
  - ABDOMINAL PAIN LOWER [None]
  - ANGER [None]
  - DEPRESSION [None]
  - DEVICE BREAKAGE [None]
  - INTRA-UTERINE CONTRACEPTIVE DEVICE EXPELLED [None]
  - IRRITABILITY [None]
  - METRORRHAGIA [None]
  - MOOD SWINGS [None]
  - PAIN [None]
  - PROCEDURAL PAIN [None]
  - PROGESTERONE INCREASED [None]
  - SELF ESTEEM DECREASED [None]
  - SLEEP DISORDER [None]
  - VAGINAL HAEMORRHAGE [None]
  - WEIGHT INCREASED [None]
